FAERS Safety Report 24187720 (Version 1)
Quarter: 2024Q3

REPORT INFORMATION
  Report Type: Report from Study
  Country: CO (occurrence: None)
  Receive Date: 20240808
  Receipt Date: 20240808
  Transmission Date: 20241017
  Serious: Yes (Hospitalization)
  Sender: ASTRAZENECA
  Company Number: 2022A134124

PATIENT
  Age: 22591 Day
  Sex: Male
  Weight: 52 kg

DRUGS (1)
  1. IMFINZI [Suspect]
     Active Substance: DURVALUMAB
     Indication: Lung neoplasm malignant
     Route: 042
     Dates: start: 20211103

REACTIONS (6)
  - Laboratory test abnormal [Recovering/Resolving]
  - Full blood count abnormal [Recovering/Resolving]
  - Blood electrolytes abnormal [Recovering/Resolving]
  - Serum ferritin decreased [Recovering/Resolving]
  - Fatigue [Recovering/Resolving]
  - Product prescribing issue [Unknown]

NARRATIVE: CASE EVENT DATE: 20211103
